FAERS Safety Report 25597674 (Version 1)
Quarter: 2025Q3

REPORT INFORMATION
  Report Type: Spontaneous
  Country: US (occurrence: None)
  Receive Date: 20250723
  Receipt Date: 20250723
  Transmission Date: 20251020
  Serious: Yes (unspecified)
  Sender: FDA-CTU
  Company Number: None

PATIENT
  Age: 42 Year
  Sex: Female
  Weight: 58.5 kg

DRUGS (1)
  1. HERBALS [Suspect]
     Active Substance: HERBALS
     Indication: Luteal phase deficiency
     Route: 061
     Dates: start: 20250614, end: 20250722

REACTIONS (9)
  - Product label issue [None]
  - Hormone level abnormal [None]
  - Nausea [None]
  - Breast pain [None]
  - Neck pain [None]
  - Fatigue [None]
  - Body temperature decreased [None]
  - Abdominal discomfort [None]
  - Product advertising issue [None]

NARRATIVE: CASE EVENT DATE: 20250722
